FAERS Safety Report 8171146-X (Version None)
Quarter: 2012Q1

REPORT INFORMATION
  Report Type: 
  Country: None (occurrence: None)
  Receive Date: 20120228
  Receipt Date: 20120105
  Transmission Date: 20120608
  Serious: No
  Sender: FDA-Public Use
  Company Number: US-BRISTOL-MYERS SQUIBB COMPANY-16182396

PATIENT
  Age: 87 Year
  Sex: Female

DRUGS (2)
  1. ONGLYZA [Suspect]
     Indication: TYPE 2 DIABETES MELLITUS
     Dosage: 1DF=5(UNITS NOT SPECIFIED).
     Route: 048
     Dates: start: 20110101
  2. CRANBERRY [Concomitant]
     Dosage: EVERYDAY DAY 4 PILLS OF A CRANBERRY MIXTURE

REACTIONS (2)
  - ABDOMINAL DISCOMFORT [None]
  - DIZZINESS [None]
